FAERS Safety Report 14367532 (Version 1)
Quarter: 2018Q1

REPORT INFORMATION
  Report Type: Spontaneous
  Country: US (occurrence: US)
  Receive Date: 20180108
  Receipt Date: 20180108
  Transmission Date: 20180509
  Serious: Yes (Life-Threatening, Hospitalization, Disabling)
  Sender: FDA-Public Use
  Company Number: None

PATIENT
  Age: 39 Year
  Sex: Male
  Weight: 75.15 kg

DRUGS (7)
  1. GADOVIST [Suspect]
     Active Substance: GADOBUTROL
     Indication: SCAN WITH CONTRAST
     Dates: start: 20180104, end: 20180104
  2. GABAPENTIN. [Concomitant]
     Active Substance: GABAPENTIN
  3. CYMBALTA [Concomitant]
     Active Substance: DULOXETINE HYDROCHLORIDE
  4. GADOVIST [Suspect]
     Active Substance: GADOBUTROL
     Indication: NUCLEAR MAGNETIC RESONANCE IMAGING
     Dates: start: 20180104, end: 20180104
  5. CLONIDINE. [Concomitant]
     Active Substance: CLONIDINE
  6. DAILY MULTIVITAMIN [Concomitant]
     Active Substance: VITAMINS
  7. PRAZOSIN. [Concomitant]
     Active Substance: PRAZOSIN

REACTIONS (4)
  - Vertigo [None]
  - Neck pain [None]
  - Headache [None]
  - Injection site erythema [None]

NARRATIVE: CASE EVENT DATE: 20180104
